FAERS Safety Report 8189892-0 (Version None)
Quarter: 2012Q1

REPORT INFORMATION
  Report Type: 
  Country: None (occurrence: None)
  Receive Date: 20120307
  Receipt Date: 20120228
  Transmission Date: 20120608
  Serious: Yes (Other)
  Sender: FDA-Public Use
  Company Number: US-JNJFOC-20120214332

PATIENT
  Sex: Female
  Weight: 84 kg

DRUGS (5)
  1. DOXORUBICIN HCL [Suspect]
     Indication: BREAST CANCER
     Route: 042
     Dates: start: 20110222
  2. CYCLOPHOSPHAMIDE [Suspect]
     Indication: BREAST CANCER
     Route: 042
     Dates: start: 20110222
  3. PACLITAXEL [Suspect]
     Indication: BREAST CANCER
     Route: 042
  4. NEULASTA [Suspect]
     Indication: BREAST CANCER
     Route: 058
     Dates: start: 20110222
  5. BEVACIZUMAB [Suspect]
     Indication: BREAST CANCER
     Route: 042
     Dates: start: 20110222, end: 20110712

REACTIONS (1)
  - SYSTOLIC DYSFUNCTION [None]
